FAERS Safety Report 10108878 (Version 2)
Quarter: 2014Q2

REPORT INFORMATION
  Report Type: Spontaneous
  Country: US (occurrence: US)
  Receive Date: 20140425
  Receipt Date: 20140425
  Transmission Date: 20141212
  Serious: Yes (Other)
  Sender: FDA-Public Use
  Company Number: US-BEH-2013038496

PATIENT
  Sex: Female

DRUGS (2)
  1. HIZENTRA [Suspect]
     Route: 058
  2. HIZENTRA [Suspect]
     Dosage: RE-START NOV2013
     Route: 058

REACTIONS (5)
  - Meningitis aseptic [Recovered/Resolved]
  - Headache [Unknown]
  - Infusion site swelling [Unknown]
  - Infusion site erythema [Unknown]
  - Infusion site reaction [Unknown]
